FAERS Safety Report 7544097-9 (Version None)
Quarter: 2011Q2

REPORT INFORMATION
  Report Type: 
  Country: None (occurrence: None)
  Receive Date: 20110613
  Receipt Date: 20051220
  Transmission Date: 20111010
  Serious: Yes (Hospitalization)
  Sender: FDA-Public Use
  Company Number: PHHO2005ES19816

PATIENT
  Age: 68 Year
  Sex: Male

DRUGS (4)
  1. TORADOL [Concomitant]
  2. ZOLEDRONIC ACID [Suspect]
     Indication: METASTASES TO BONE
     Dosage: 4 MG, QMO
     Route: 042
     Dates: start: 20030220, end: 20030326
  3. LORAZEPAM [Concomitant]
  4. DEXAMETHASONE [Concomitant]

REACTIONS (5)
  - ENTERITIS [None]
  - HAEMATURIA [None]
  - GENERALISED OEDEMA [None]
  - RECTAL HAEMORRHAGE [None]
  - METASTASES TO LIVER [None]
